FAERS Safety Report 7716212-5 (Version None)
Quarter: 2011Q3

REPORT INFORMATION
  Report Type: 
  Country: None (occurrence: None)
  Receive Date: 20110829
  Receipt Date: 20110825
  Transmission Date: 20111222
  Serious: Yes (Death, Life-Threatening, Other)
  Sender: FDA-Public Use
  Company Number: JP-ASTRAZENECA-2011SE48278

PATIENT
  Age: 50 Year
  Sex: Female

DRUGS (1)
  1. FOSCAVIR [Suspect]
     Indication: CYTOMEGALOVIRUS INFECTION
     Dosage: 24 MG/ML
     Route: 041
     Dates: start: 20110808

REACTIONS (3)
  - ACUTE PULMONARY OEDEMA [None]
  - RENAL IMPAIRMENT [None]
  - BLOOD CALCIUM DECREASED [None]
